FAERS Safety Report 5954481-2 (Version None)
Quarter: 2008Q4

REPORT INFORMATION
  Report Type: 
  Country: None (occurrence: None)
  Receive Date: 20081117
  Receipt Date: 20080507
  Transmission Date: 20090506
  Serious: No
  Sender: FDA-Public Use
  Company Number: US-ABBOTT-08P-163-0451149-00

PATIENT
  Sex: Male
  Weight: 68.554 kg

DRUGS (2)
  1. TARKA [Suspect]
     Indication: HYPERTENSION
     Route: 048
     Dates: start: 20030101
  2. BUPROPION HCL [Concomitant]
     Indication: DEPRESSION
     Route: 048
     Dates: start: 20030101

REACTIONS (2)
  - CARDIAC STRESS TEST ABNORMAL [None]
  - HEART RATE ABNORMAL [None]
